FAERS Safety Report 7523910-5 (Version None)
Quarter: 2011Q2

REPORT INFORMATION
  Report Type: 
  Country: None (occurrence: None)
  Receive Date: 20110603
  Receipt Date: 20110526
  Transmission Date: 20111010
  Serious: Yes (Other)
  Sender: FDA-Public Use
  Company Number: JP-MERCK-1105USA04118

PATIENT
  Age: 91 Year
  Sex: Female

DRUGS (4)
  1. PEPCID RPD [Suspect]
     Route: 048
     Dates: start: 20110518
  2. MAGMITT [Concomitant]
     Route: 048
  3. AMLODIPINE BESYLATE [Concomitant]
     Route: 048
  4. LOXONIN [Concomitant]
     Route: 048

REACTIONS (1)
  - DEMENTIA [None]
